FAERS Safety Report 10594658 (Version 1)
Quarter: 2014Q4

REPORT INFORMATION
  Report Type: Spontaneous
  Country: US (occurrence: US)
  Receive Date: 20141120
  Receipt Date: 20141120
  Transmission Date: 20150529
  Serious: No
  Sender: FDA-Public Use
  Company Number: US-TEVA-507888USA

PATIENT
  Sex: Female

DRUGS (3)
  1. DIAZEPAM. [Suspect]
     Active Substance: DIAZEPAM
     Indication: ANXIETY
  2. DIAZEPAM. [Suspect]
     Active Substance: DIAZEPAM
     Indication: DEPRESSION
  3. DIAZEPAM. [Suspect]
     Active Substance: DIAZEPAM
     Indication: NERVOUS SYSTEM DISORDER

REACTIONS (2)
  - Drug effect decreased [Unknown]
  - Product physical issue [Unknown]
